FAERS Safety Report 7217310-5 (Version None)
Quarter: 2011Q1

REPORT INFORMATION
  Report Type: 
  Country: None (occurrence: None)
  Receive Date: 20110110
  Receipt Date: 20101223
  Transmission Date: 20110831
  Serious: Yes (Other)
  Sender: FDA-Public Use
  Company Number: FR-CELGENEUS-056-20785-10123240

PATIENT
  Age: 77 Year
  Sex: Male

DRUGS (3)
  1. MELPHALAN [Concomitant]
     Indication: MULTIPLE MYELOMA
     Route: 065
     Dates: start: 20070201, end: 20080701
  2. PREDNISONE [Concomitant]
     Indication: MULTIPLE MYELOMA
     Route: 065
     Dates: start: 20070201, end: 20080701
  3. THALIDOMIDE [Suspect]
     Indication: MULTIPLE MYELOMA
     Route: 048
     Dates: start: 20070201, end: 20080701

REACTIONS (2)
  - NEUROTOXICITY [None]
  - RENAL FAILURE [None]
